FAERS Safety Report 24563893 (Version 1)
Quarter: 2024Q4

REPORT INFORMATION
  Report Type: Report from Study
  Country: ES (occurrence: ES)
  Receive Date: 20241030
  Receipt Date: 20241030
  Transmission Date: 20250114
  Serious: Yes (Other)
  Sender: ABBVIE
  Company Number: ES-ABBVIE-5800297

PATIENT
  Sex: Male

DRUGS (3)
  1. CARBIDOPA\LEVODOPA [Suspect]
     Active Substance: CARBIDOPA\LEVODOPA
     Indication: Parkinson^s disease
     Dosage: SPEED IS LOW, INFUSION LOW AT 0.25 ML/H FOR 24 HOURS, SPEED SETTING: LOW (0.23 ML/H),  240 MG/ML ...
     Route: 058
     Dates: start: 20240517
  2. CARBIDOPA\LEVODOPA [Suspect]
     Active Substance: CARBIDOPA\LEVODOPA
     Dosage: 240 MG/ML + 12 MG/ML SOLUCION PARA PERFUSION
     Route: 058
     Dates: start: 20240401, end: 202405
  3. MIDAZOLAM [Concomitant]
     Active Substance: MIDAZOLAM
     Indication: Product used for unknown indication
     Dates: start: 202405

REACTIONS (5)
  - Drug abuse [Recovered/Resolved]
  - Euphoric mood [Recovered/Resolved]
  - Hyperkinesia [Recovered/Resolved]
  - Restlessness [Recovered/Resolved]
  - On and off phenomenon [Unknown]

NARRATIVE: CASE EVENT DATE: 20240101
